FAERS Safety Report 9557087 (Version 1)
Quarter: 2013Q3

REPORT INFORMATION
  Report Type: Report from Study
  Country: AR (occurrence: AR)
  Receive Date: 20130926
  Receipt Date: 20130926
  Transmission Date: 20140515
  Serious: Yes (Death, Disabling, Other)
  Sender: FDA-Public Use
  Company Number: PHHY2013AR102474

PATIENT
  Sex: Male

DRUGS (3)
  1. STALEVO [Suspect]
     Indication: BALANCE DISORDER
     Dosage: 2 DF(50 MG), QD
     Route: 048
  2. STALEVO [Suspect]
     Dosage: 2 DF(125 MG), QD
     Route: 048
  3. STALEVO [Suspect]
     Dosage: 2 DF(150 MG), QD
     Route: 048

REACTIONS (3)
  - Psychomotor skills impaired [Fatal]
  - Parkinson^s disease [Fatal]
  - Fall [Recovering/Resolving]
